FAERS Safety Report 7258001-4 (Version None)
Quarter: 2011Q1

REPORT INFORMATION
  Report Type: 
  Country: None (occurrence: None)
  Receive Date: 20110129
  Receipt Date: 20100713
  Transmission Date: 20110831
  Serious: No
  Sender: FDA-Public Use
  Company Number: US-ABBOTT-10P-163-0651553-00

PATIENT
  Age: 82 Year
  Sex: Female

DRUGS (14)
  1. METHOTREXATE [Concomitant]
     Indication: RHEUMATOID ARTHRITIS
     Dosage: ONCE WEEKLY
  2. VITAMIN E [Concomitant]
     Indication: ROUTINE HEALTH MAINTENANCE
  3. PREDNISONE [Concomitant]
     Indication: RHEUMATOID ARTHRITIS
  4. MECLIZINE [Concomitant]
     Indication: MENIERE'S DISEASE
  5. MULTI-VITAMIN [Concomitant]
     Indication: ROUTINE HEALTH MAINTENANCE
     Dosage: ONCE DAILY
  6. HUMIRA [Suspect]
     Indication: RHEUMATOID ARTHRITIS
  7. TRIAMTERENE AND HYDROCHLOROTHIAZIDE [Concomitant]
     Indication: OEDEMA
     Dosage: 37.5/25MG
  8. ASCORBIC ACID [Concomitant]
  9. FOLIC ACID [Concomitant]
     Indication: RHEUMATOID ARTHRITIS
  10. VITAMIN D [Concomitant]
     Indication: ROUTINE HEALTH MAINTENANCE
  11. CALCIUM [Concomitant]
     Indication: OSTEOPOROSIS
  12. VITAMIN D [Concomitant]
     Indication: RHEUMATOID ARTHRITIS
  13. FISH OIL [Concomitant]
  14. MAGNESIUM [Concomitant]
     Indication: ROUTINE HEALTH MAINTENANCE

REACTIONS (3)
  - DEVICE MALFUNCTION [None]
  - DIZZINESS [None]
  - DRUG DOSE OMISSION [None]
